FAERS Safety Report 5616005-9 (Version None)
Quarter: 2008Q1

REPORT INFORMATION
  Report Type: 
  Country: None (occurrence: None)
  Receive Date: 20080206
  Receipt Date: 20080128
  Transmission Date: 20080703
  Serious: Yes (Hospitalization)
  Sender: FDA-Public Use
  Company Number: GB-PFIZER INC-2006089347

PATIENT
  Sex: Male
  Weight: 133 kg

DRUGS (17)
  1. SU-011,248 [Suspect]
     Indication: RENAL CELL CARCINOMA
     Route: 048
     Dates: start: 20060523, end: 20060730
  2. TRAMADOL HCL [Concomitant]
     Route: 048
  3. PARACETAMOL [Concomitant]
     Route: 048
     Dates: start: 20060515
  4. IBUPROFEN [Concomitant]
     Route: 048
     Dates: start: 20060515
  5. GLUCOSAMINE SULFATE [Concomitant]
     Route: 048
     Dates: start: 20060515
  6. DEXAMETHASONE TAB [Concomitant]
     Route: 048
     Dates: start: 20060530
  7. LANSOPRAZOLE [Concomitant]
     Route: 048
  8. OXYCODONE HCL [Concomitant]
     Route: 048
  9. LACTULOSE [Concomitant]
     Route: 048
  10. OXYNORM [Concomitant]
     Route: 048
  11. SIMVASTATIN [Concomitant]
     Route: 048
     Dates: start: 20060501
  12. GARLIC [Concomitant]
     Route: 048
  13. METFORMIN HCL [Concomitant]
     Route: 048
  14. ASPIRIN [Concomitant]
     Route: 048
  15. SUPRALIP [Concomitant]
     Route: 048
  16. GEROVITAL [Concomitant]
     Route: 048
  17. INSULIN [Concomitant]
     Route: 058

REACTIONS (4)
  - BACK PAIN [None]
  - CONFUSIONAL STATE [None]
  - LOWER RESPIRATORY TRACT INFECTION [None]
  - PYREXIA [None]
